FAERS Safety Report 21297867 (Version 1)
Quarter: 2022Q3

REPORT INFORMATION
  Report Type: Spontaneous
  Country: US (occurrence: US)
  Receive Date: 20220906
  Receipt Date: 20220906
  Transmission Date: 20221027
  Serious: Yes (Hospitalization)
  Sender: FDA-Public Use
  Company Number: US-MYLANLABS-2022M1090820

PATIENT
  Age: 76 Year
  Sex: Male

DRUGS (5)
  1. FENTANYL [Suspect]
     Active Substance: FENTANYL
     Indication: Sedative therapy
     Dosage: UNK
     Route: 065
  2. FENTANYL [Suspect]
     Active Substance: FENTANYL
     Indication: Back pain
  3. LIDOCAINE [Suspect]
     Active Substance: LIDOCAINE
     Indication: Back pain
     Dosage: UNK, TID, THREE TIMES A DAY
     Route: 062
  4. CETACAINE ANESTHETIC [Suspect]
     Active Substance: BENZOCAINE\BUTAMBEN\TETRACAINE HYDROCHLORIDE
     Indication: Sedative therapy
     Dosage: UNK
     Route: 049
  5. VERSED [Suspect]
     Active Substance: MIDAZOLAM HYDROCHLORIDE
     Indication: Sedative therapy
     Dosage: UNK
     Route: 065

REACTIONS (1)
  - Methaemoglobinaemia [Recovering/Resolving]
